FAERS Safety Report 4513912-5 (Version None)
Quarter: 2004Q4

REPORT INFORMATION
  Report Type: 
  Country: None (occurrence: None)
  Receive Date: 20041130
  Receipt Date: 20040927
  Transmission Date: 20050328
  Serious: No
  Sender: FDA-Public Use
  Company Number: US-GLAXOSMITHKLINE-A0527409A

PATIENT
  Age: 42 Year
  Sex: Female

DRUGS (5)
  1. WELLBUTRIN XL [Suspect]
     Indication: DRUG USE FOR UNKNOWN INDICATION
     Dosage: 150MG PER DAY
     Route: 048
     Dates: start: 20040101, end: 20040928
  2. LIPITOR [Concomitant]
  3. ZETIA [Concomitant]
  4. NEXIUM [Concomitant]
  5. LEXAPRO [Concomitant]

REACTIONS (2)
  - BALANCE DISORDER [None]
  - FEELING ABNORMAL [None]
